FAERS Safety Report 10473961 (Version 1)
Quarter: 2014Q3

REPORT INFORMATION
  Report Type: Spontaneous
  Country: BE (occurrence: BE)
  Receive Date: 20140924
  Receipt Date: 20140924
  Transmission Date: 20150326
  Serious: Yes (Other)
  Sender: FDA-Public Use
  Company Number: BE-PFIZER INC-2014258329

PATIENT

DRUGS (1)
  1. ECALTA [Suspect]
     Active Substance: ANIDULAFUNGIN
     Dosage: 100 MG, UNK

REACTIONS (1)
  - Dialysis [Unknown]
